FAERS Safety Report 15669812 (Version 2)
Quarter: 2018Q4

REPORT INFORMATION
  Report Type: Spontaneous
  Country: JP (occurrence: JP)
  Receive Date: 20181129
  Receipt Date: 20181203
  Transmission Date: 20190205
  Serious: Yes (Other)
  Sender: FDA-Public Use
  Company Number: JP-PFIZER INC-2018491324

PATIENT
  Age: 25 Year
  Sex: Male
  Weight: 61.8 kg

DRUGS (7)
  1. FOSTOIN [Suspect]
     Active Substance: FOSPHENYTOIN SODIUM
     Indication: SEIZURE
     Dosage: 450 MG, 1X/DAY
     Route: 042
     Dates: start: 20181025, end: 20181027
  2. GLYCERIN-FRUCTOSE [Concomitant]
     Dosage: UNK
     Route: 041
     Dates: start: 20181021, end: 20181103
  3. PROPOFOL. [Concomitant]
     Active Substance: PROPOFOL
     Dosage: UNK
     Route: 065
     Dates: start: 20181020, end: 20181026
  4. LEPETAN [Concomitant]
     Active Substance: BUPRENORPHINE HYDROCHLORIDE
     Dosage: UNK
     Route: 065
     Dates: start: 20181026, end: 20181028
  5. CEFTRIAXONE SODIUM. [Suspect]
     Active Substance: CEFTRIAXONE SODIUM
     Indication: INFECTION
     Dosage: 4 G, 1X/DAY
     Route: 042
     Dates: start: 20181022, end: 20181028
  6. MIDAZOLAM [Suspect]
     Active Substance: MIDAZOLAM HYDROCHLORIDE
     Indication: SEDATION
     Dosage: 100 MG, 1X/DAY
     Route: 042
     Dates: start: 20181023, end: 20181028
  7. FAMOTIDINE D [Suspect]
     Active Substance: FAMOTIDINE
     Indication: PROPHYLAXIS
     Dosage: 20 MG, 1X/DAY
     Route: 048
     Dates: start: 20181023, end: 20181028

REACTIONS (3)
  - Aspartate aminotransferase increased [Recovering/Resolving]
  - Alanine aminotransferase increased [Recovering/Resolving]
  - Blood creatine phosphokinase increased [Recovering/Resolving]

NARRATIVE: CASE EVENT DATE: 20181026
